FAERS Safety Report 23975534 (Version 1)
Quarter: 2024Q2

REPORT INFORMATION
  Report Type: Spontaneous
  Country: US (occurrence: US)
  Receive Date: 20240614
  Receipt Date: 20240614
  Transmission Date: 20240715
  Serious: No
  Sender: FDA-Public Use
  Company Number: US-TAKEDA-2024TUS058500

PATIENT

DRUGS (1)
  1. VYVANSE [Suspect]
     Active Substance: LISDEXAMFETAMINE DIMESYLATE
     Indication: Attention deficit hyperactivity disorder
     Dosage: UNK
     Route: 065

REACTIONS (6)
  - Drug effect less than expected [Unknown]
  - Impaired work ability [Unknown]
  - Personal relationship issue [Unknown]
  - Impaired quality of life [Unknown]
  - Drug tolerance [Unknown]
  - Product physical issue [Unknown]
